FAERS Safety Report 16801803 (Version 2)
Quarter: 2019Q4

REPORT INFORMATION
  Report Type: Spontaneous
  Country: US (occurrence: US)
  Receive Date: 20190912
  Receipt Date: 20191126
  Transmission Date: 20200122
  Serious: Yes (Hospitalization)
  Sender: FDA-Public Use
  Company Number: US-SA-2019SA253547

PATIENT
  Age: 54 Year
  Sex: Female

DRUGS (5)
  1. AUBAGIO [Suspect]
     Active Substance: TERIFLUNOMIDE
     Indication: MULTIPLE SCLEROSIS
     Dosage: 14 MG, QD
     Route: 048
     Dates: start: 20180307
  2. HUMIRA [Suspect]
     Active Substance: ADALIMUMAB
  3. LIPOLIN [CARBOMER] [Suspect]
     Active Substance: CARBOMER
  4. VITAMIN D [VITAMIN D NOS] [Suspect]
     Active Substance: VITAMIN D NOS
  5. MYRBETRIQ [Suspect]
     Active Substance: MIRABEGRON
     Indication: INCONTINENCE

REACTIONS (3)
  - Skin lesion [Recovered/Resolved]
  - Swollen tongue [Recovered/Resolved]
  - Urticaria [Recovered/Resolved]

NARRATIVE: CASE EVENT DATE: 201901
